FAERS Safety Report 4978325-0 (Version None)
Quarter: 2006Q2

REPORT INFORMATION
  Report Type: 
  Country: None (occurrence: None)
  Receive Date: 20060417
  Receipt Date: 20060331
  Transmission Date: 20061013
  Serious: Yes (Other)
  Sender: FDA-Public Use
  Company Number: TRP_0742_2006

PATIENT
  Age: 58 Year
  Sex: Male
  Weight: 106.1417 kg

DRUGS (7)
  1. RIBASPHERE [Suspect]
     Indication: HEPATITIS C
     Dosage: DF PO
     Route: 048
     Dates: start: 20050619
  2. PEG-INTRON [Suspect]
     Indication: HEPATITIS C
     Dosage: DF SC
     Route: 058
     Dates: start: 20050619
  3. DILAUDID [Concomitant]
  4. OXYCONTIN [Concomitant]
  5. PRILOSEC [Concomitant]
  6. TRAZODONE HCL [Concomitant]
  7. VALIUM [Concomitant]

REACTIONS (4)
  - EYE SWELLING [None]
  - HORDEOLUM [None]
  - NAUSEA [None]
  - VOMITING [None]
